FAERS Safety Report 26143386 (Version 1)
Quarter: 2025Q4

REPORT INFORMATION
  Report Type: Spontaneous
  Country: US (occurrence: US)
  Receive Date: 20251211
  Receipt Date: 20251211
  Transmission Date: 20260118
  Serious: Yes (Death, Other)
  Sender: UPSHER SMITH LABORATORIES
  Company Number: US-UPSHER-SMITH LABORATORIES, LLC-20251201573

PATIENT
  Age: 56 Year
  Sex: Male

DRUGS (2)
  1. TESTOSTERONE [Suspect]
     Active Substance: TESTOSTERONE
     Indication: Product used for unknown indication
     Dosage: UNK
     Route: 065
  2. OXANDROLONE [Suspect]
     Active Substance: OXANDROLONE
     Indication: Product used for unknown indication
     Dosage: UNK

REACTIONS (6)
  - Cardiac death [Fatal]
  - Ventricular tachyarrhythmia [Unknown]
  - Deep vein thrombosis [Unknown]
  - Coronary artery disease [Unknown]
  - Left ventricular hypertrophy [Unknown]
  - Polycythaemia [Unknown]
